FAERS Safety Report 9262139 (Version 1)
Quarter: 2013Q2

REPORT INFORMATION
  Report Type: Report from Study
  Country: US (occurrence: US)
  Receive Date: 20130430
  Receipt Date: 20130430
  Transmission Date: 20140414
  Serious: Yes (Death, Hospitalization)
  Sender: FDA-Public Use
  Company Number: US-ROCHE-1200764

PATIENT
  Age: 60 Year
  Sex: Male
  Weight: 106.69 kg

DRUGS (3)
  1. AVASTIN [Suspect]
     Indication: COLORECTAL CANCER METASTATIC
     Route: 042
     Dates: start: 20121217, end: 20130129
  2. 5-FLUOROURACIL [Concomitant]
     Indication: COLORECTAL CANCER
     Route: 042
     Dates: end: 20130129
  3. IRINOTECAN [Concomitant]
     Indication: COLORECTAL CANCER
     Route: 042
     Dates: end: 20130129

REACTIONS (4)
  - Death [Fatal]
  - Osteomyelitis [Recovered/Resolved]
  - Infective myositis [Not Recovered/Not Resolved]
  - Arthritis infective [Not Recovered/Not Resolved]
